FAERS Safety Report 12632159 (Version 2)
Quarter: 2016Q3

REPORT INFORMATION
  Report Type: Spontaneous
  Country: US (occurrence: US)
  Receive Date: 20160808
  Receipt Date: 20160808
  Transmission Date: 20161109
  Serious: No
  Sender: FDA-Public Use
  Company Number: US-BEH-2016062055

PATIENT
  Sex: Female
  Weight: 83 kg

DRUGS (31)
  1. LOSARTAN. [Concomitant]
     Active Substance: LOSARTAN
  2. MAGNESIUM [Concomitant]
     Active Substance: MAGNESIUM
  3. AUGMENTIN [Concomitant]
     Active Substance: AMOXICILLIN\CLAVULANATE POTASSIUM
  4. NEXIUM [Concomitant]
     Active Substance: ESOMEPRAZOLE MAGNESIUM
  5. PROAIR HFA [Concomitant]
     Active Substance: ALBUTEROL SULFATE
  6. EPIPEN [Concomitant]
     Active Substance: EPINEPHRINE
  7. FLONASE [Concomitant]
     Active Substance: FLUTICASONE PROPIONATE
  8. HIZENTRA [Suspect]
     Active Substance: HUMAN IMMUNOGLOBULIN G
     Indication: IMMUNODEFICIENCY COMMON VARIABLE
     Route: 058
     Dates: start: 20110602
  9. OXYGEN. [Concomitant]
     Active Substance: OXYGEN
  10. POTASSIUM [Concomitant]
     Active Substance: POTASSIUM
  11. ACETAMINOPHEN. [Concomitant]
     Active Substance: ACETAMINOPHEN
  12. NERONTIN [Concomitant]
  13. PROBIOTIC [Concomitant]
     Active Substance: PROBIOTICS NOS
  14. VITAMIN D [Concomitant]
     Active Substance: CHOLECALCIFEROL
  15. FUROSEMIDE. [Concomitant]
     Active Substance: FUROSEMIDE
  16. COUMADIN [Concomitant]
     Active Substance: WARFARIN SODIUM
  17. SYMBICORT [Concomitant]
     Active Substance: BUDESONIDE\FORMOTEROL FUMARATE DIHYDRATE
  18. LEVOTHYROXINE. [Concomitant]
     Active Substance: LEVOTHYROXINE
  19. LIDOCAINE/PRILOCAINE [Concomitant]
     Active Substance: LIDOCAINE\PRILOCAINE
  20. FISH OIL [Concomitant]
     Active Substance: FISH OIL
  21. ONE A DAY [Concomitant]
  22. SYMBICORT [Concomitant]
     Active Substance: BUDESONIDE\FORMOTEROL FUMARATE DIHYDRATE
  23. FORTICAL [Concomitant]
     Active Substance: CALCITONIN SALMON
  24. HYDROCHLORTHIAZIDE [Concomitant]
     Active Substance: HYDROCHLOROTHIAZIDE
  25. VITAMIN C [Concomitant]
     Active Substance: ASCORBIC ACID
  26. SPIRONLACTONE [Concomitant]
  27. DIPHENHYDRAMINE. [Concomitant]
     Active Substance: DIPHENHYDRAMINE
  28. PLAQUENIL [Concomitant]
     Active Substance: HYDROXYCHLOROQUINE SULFATE
  29. VALIUM [Concomitant]
     Active Substance: DIAZEPAM
  30. CRESTOR [Concomitant]
     Active Substance: ROSUVASTATIN CALCIUM
  31. FIBER [Concomitant]
     Active Substance: PSYLLIUM HUSK

REACTIONS (2)
  - Administration site pruritus [Unknown]
  - Nasopharyngitis [Unknown]

NARRATIVE: CASE EVENT DATE: 201601
